FAERS Safety Report 7126234-3 (Version None)
Quarter: 2010Q4

REPORT INFORMATION
  Report Type: 
  Country: None (occurrence: None)
  Receive Date: 20101129
  Receipt Date: 20101117
  Transmission Date: 20110411
  Serious: Yes (Other)
  Sender: FDA-Public Use
  Company Number: GB-JNJFOC-20101107244

PATIENT
  Age: 43 Year
  Sex: Male
  Weight: 72.6 kg

DRUGS (2)
  1. TRAMADOL HYDROCHLORIDE [Suspect]
     Indication: BACK PAIN
     Dosage: 1 TO 2 QDS PRN
     Route: 048
  2. TRAMADOL HCL [Suspect]
     Indication: ILL-DEFINED DISORDER
     Route: 065

REACTIONS (3)
  - APHAGIA [None]
  - CONFUSIONAL STATE [None]
  - NAUSEA [None]
